FAERS Safety Report 8520825-0 (Version None)
Quarter: 2012Q3

REPORT INFORMATION
  Report Type: 
  Country: None (occurrence: None)
  Receive Date: 20120719
  Receipt Date: 20120716
  Transmission Date: 20120928
  Serious: Yes (Other)
  Sender: FDA-Public Use
  Company Number: BR-PFIZER INC-2011217276

PATIENT
  Age: 58 Year
  Sex: Female

DRUGS (8)
  1. VARENICLINE TARTRATE [Suspect]
     Dosage: TWO TABLETS DAILY
     Route: 048
     Dates: start: 20110901, end: 20110918
  2. NEXIUM [Concomitant]
     Dosage: ONE TABLET ONCE DAILY
     Dates: start: 20100101
  3. LIPITOR [Concomitant]
     Indication: BLOOD CHOLESTEROL
     Dosage: 40 MG, 1X/DAY
     Dates: start: 20100101
  4. VARENICLINE TARTRATE [Suspect]
     Indication: SMOKING CESSATION THERAPY
     Dosage: 0.5 MG, 1X/DAY
     Route: 048
     Dates: start: 20110913, end: 20110901
  5. VARENICLINE TARTRATE [Suspect]
     Dosage: UNK
     Route: 048
     Dates: start: 20110901, end: 20110901
  6. CLONAZEPAM [Concomitant]
     Indication: HYPERTENSION
     Dosage: 3 TABLETS THREE TIMES DAILY
     Dates: start: 20100101
  7. CLOPIDOGREL [Concomitant]
     Dosage: ONE TABLET ONCE DAILY
     Dates: start: 20100101
  8. ASPIRIN [Concomitant]
     Dosage: UNK

REACTIONS (3)
  - CHEST PAIN [None]
  - BLOOD URINE [None]
  - NAUSEA [None]
